FAERS Safety Report 8964912 (Version 2)
Quarter: 2013Q2

REPORT INFORMATION
  Report Type: Report from Study
  Country: GB (occurrence: GB)
  Receive Date: 20121213
  Receipt Date: 20130401
  Transmission Date: 20140414
  Serious: Yes (Hospitalization)
  Sender: FDA-Public Use
  Company Number: GB-ASTRAZENECA-2012SE91403

PATIENT
  Age: 24082 Day
  Sex: Male
  Weight: 69.3 kg

DRUGS (6)
  1. VANDETANIB [Suspect]
     Indication: PANCREATIC CARCINOMA
     Route: 048
     Dates: start: 20120618
  2. GEMCITABINE [Suspect]
     Indication: PANCREATIC CARCINOMA
     Route: 041
     Dates: start: 20120618, end: 20120701
  3. GEMCITABINE [Suspect]
     Indication: PANCREATIC CARCINOMA
     Route: 041
     Dates: start: 20120702, end: 20120715
  4. GEMCITABINE [Suspect]
     Indication: PANCREATIC CARCINOMA
     Route: 041
     Dates: start: 20120716, end: 20121119
  5. TRIMOVATE [Concomitant]
     Indication: RASH
     Dates: start: 20120615
  6. CO-CODAMOL [Concomitant]
     Indication: ANALGESIC THERAPY
     Dosage: 30.02 TABLETS QDS
     Route: 048

REACTIONS (1)
  - Pleuritic pain [Recovered/Resolved]
